FAERS Safety Report 21033995 (Version 2)
Quarter: 2022Q3

REPORT INFORMATION
  Report Type: Spontaneous
  Country: US (occurrence: US)
  Receive Date: 20220701
  Receipt Date: 20220825
  Transmission Date: 20221027
  Serious: Yes (Other)
  Sender: FDA-Public Use
  Company Number: US-PFIZER INC-202200911911

PATIENT
  Age: 68 Year
  Sex: Female
  Weight: 93.89 kg

DRUGS (2)
  1. XELJANZ [Suspect]
     Active Substance: TOFACITINIB CITRATE
     Indication: Rheumatoid arthritis
     Dosage: 5 MG, 2X/DAY
     Dates: start: 2011
  2. VERZENIO [Concomitant]
     Active Substance: ABEMACICLIB
     Dosage: 100 MG

REACTIONS (6)
  - Neoplasm malignant [Not Recovered/Not Resolved]
  - Cardiac failure congestive [Unknown]
  - Rheumatoid arthritis [Unknown]
  - Invasive ductal breast carcinoma [Unknown]
  - Lymphoma [Unknown]
  - Anaemia [Unknown]

NARRATIVE: CASE EVENT DATE: 20210101
